FAERS Safety Report 20531242 (Version 1)
Quarter: 2022Q1

REPORT INFORMATION
  Report Type: Spontaneous
  Country: US (occurrence: US)
  Receive Date: 20220301
  Receipt Date: 20220301
  Transmission Date: 20220423
  Serious: Yes (Other)
  Sender: FDA-Public Use
  Company Number: US-GLAXOSMITHKLINE-US2022GSK035481

PATIENT
  Sex: Male

DRUGS (7)
  1. ZANTAC [Suspect]
     Active Substance: RANITIDINE HYDROCHLORIDE
     Indication: Gastrooesophageal reflux disease
     Dosage: UNK UNK, QD
     Route: 065
     Dates: start: 200302, end: 200512
  2. ZANTAC [Suspect]
     Active Substance: RANITIDINE HYDROCHLORIDE
     Dosage: UNK UNK, TID
     Route: 065
     Dates: start: 200302, end: 200512
  3. ZANTAC [Suspect]
     Active Substance: RANITIDINE HYDROCHLORIDE
     Indication: Gastrooesophageal reflux disease
     Dosage: UNK UNK, QD
     Route: 065
     Dates: start: 200302, end: 200512
  4. ZANTAC [Suspect]
     Active Substance: RANITIDINE HYDROCHLORIDE
     Dosage: UNK UNK, TID
     Route: 065
     Dates: start: 200302, end: 200512
  5. RANITIDINE HYDROCHLORIDE [Suspect]
     Active Substance: RANITIDINE HYDROCHLORIDE
     Indication: Gastrooesophageal reflux disease
     Dosage: UNK UNK, QD
     Route: 065
     Dates: start: 200302, end: 200512
  6. RANITIDINE HYDROCHLORIDE [Suspect]
     Active Substance: RANITIDINE HYDROCHLORIDE
     Dosage: UNK UNK, TID
     Route: 065
     Dates: start: 200302, end: 200512
  7. RANITIDINE HYDROCHLORIDE [Suspect]
     Active Substance: RANITIDINE HYDROCHLORIDE
     Indication: Gastrooesophageal reflux disease
     Dosage: UNK UNK, QD
     Route: 065
     Dates: start: 200302, end: 200512

REACTIONS (1)
  - Oesophageal carcinoma [Unknown]
